FAERS Safety Report 8454247-8 (Version None)
Quarter: 2012Q2

REPORT INFORMATION
  Report Type: 
  Country: None (occurrence: None)
  Receive Date: 20120620
  Receipt Date: 20120608
  Transmission Date: 20120825
  Serious: Yes (Other)
  Sender: FDA-Public Use
  Company Number: US-ALLERGAN-0809908US

PATIENT

DRUGS (9)
  1. LEVOBUNOLOL HCL [Suspect]
     Indication: POSTOPERATIVE CARE
     Route: 047
  2. CYCLOPENTOLATE HYDROCHLORIDE [Suspect]
     Indication: PREOPERATIVE CARE
     Route: 047
  3. TETRACAINE HYDROCHLORIDE [Suspect]
     Indication: POSTOPERATIVE CARE
     Route: 047
  4. EPHEDRINE SUL CAP [Suspect]
     Indication: POSTOPERATIVE CARE
  5. ZYMAR [Suspect]
     Indication: POSTOPERATIVE CARE
     Route: 047
  6. BSS [Suspect]
     Indication: POSTOPERATIVE CARE
     Route: 047
  7. VIGAMOX [Suspect]
     Indication: POSTOPERATIVE CARE
     Route: 047
  8. PHENYLEPHRINE HYDROCHLORIDE [Suspect]
     Indication: PREOPERATIVE CARE
     Route: 047
  9. FLURBIPROFEN SODIUM [Suspect]
     Indication: PREOPERATIVE CARE
     Route: 047

REACTIONS (1)
  - TOXIC ANTERIOR SEGMENT SYNDROME [None]
